FAERS Safety Report 6153776-X (Version None)
Quarter: 2009Q2

REPORT INFORMATION
  Report Type: 
  Country: None (occurrence: None)
  Receive Date: 20090410
  Receipt Date: 20090330
  Transmission Date: 20091009
  Serious: Yes (Death)
  Sender: FDA-Public Use
  Company Number: 2009AP001377

PATIENT
  Age: 78 Year
  Sex: Female

DRUGS (3)
  1. MIRTAZAPINE [Suspect]
  2. SERTRALINE HCL [Suspect]
  3. ZYPREXA [Suspect]
     Dosage: 2.5 MG; QD

REACTIONS (3)
  - COMPLETED SUICIDE [None]
  - DRUG TOXICITY [None]
  - PNEUMONIA [None]
